FAERS Safety Report 6637776-9 (Version None)
Quarter: 2010Q1

REPORT INFORMATION
  Report Type: 
  Country: None (occurrence: None)
  Receive Date: 20100317
  Receipt Date: 20100309
  Transmission Date: 20100710
  Serious: Yes (Other)
  Sender: FDA-Public Use
  Company Number: BR-ABBOTT-10P-020-0631289-00

PATIENT
  Age: 52 Year
  Sex: Male

DRUGS (2)
  1. VALPAKINE [Suspect]
     Indication: CONVULSION
     Route: 048
  2. VALPAKINE [Suspect]
     Route: 048
     Dates: end: 20100201

REACTIONS (4)
  - CONVULSION [None]
  - DRUG INEFFECTIVE [None]
  - PRODUCT QUALITY ISSUE [None]
  - SPEECH DISORDER [None]
